FAERS Safety Report 8501698 (Version 2)
Quarter: 2012Q4

REPORT INFORMATION
  Report Type: 
  Country: DK (occurrence: DK)
  Receive Date: 20120410
  Receipt Date: 20120914
  Transmission Date: 20130627
  Serious: Yes (Other)
  Sender: FDA-Public Use
  Company Number: DK-ELI_LILLY_AND_COMPANY-DK201204001062

PATIENT
  Age: 67 None
  Sex: Male

DRUGS (3)
  1. CYMBALTA [Suspect]
     Indication: DEPRESSION
     Dosage: 30 mg, qd
     Route: 048
     Dates: start: 20090219
  2. CYMBALTA [Suspect]
     Dosage: 30 mg, qod
     Route: 048
     Dates: start: 20100324, end: 20100414
  3. CYMBALTA [Suspect]
     Dosage: UNK, unknown
     Route: 048
     Dates: end: 201011

REACTIONS (26)
  - Loss of consciousness [Unknown]
  - Hemiparesis [Recovering/Resolving]
  - Gait disturbance [Recovered/Resolved]
  - Fall [Recovered/Resolved]
  - Dry mouth [Recovering/Resolving]
  - Headache [Recovering/Resolving]
  - Urinary incontinence [Unknown]
  - Chills [Recovering/Resolving]
  - Somnolence [Recovering/Resolving]
  - Hyperhidrosis [Recovering/Resolving]
  - Cognitive disorder [Recovering/Resolving]
  - Dry eye [Recovering/Resolving]
  - Accommodation disorder [Recovering/Resolving]
  - Fatigue [Recovering/Resolving]
  - Muscle rigidity [Recovered/Resolved]
  - Tongue spasm [Recovering/Resolving]
  - Drug withdrawal syndrome [Recovering/Resolving]
  - Micturition urgency [Recovering/Resolving]
  - Urinary incontinence [Recovering/Resolving]
  - Indifference [Recovering/Resolving]
  - Emotional disorder [Recovering/Resolving]
  - Reflexes abnormal [Recovering/Resolving]
  - Nuchal rigidity [Recovered/Resolved]
  - Wheezing [Unknown]
  - Supranuclear palsy [Recovering/Resolving]
  - Toxicity to various agents [Unknown]
